FAERS Safety Report 13769648 (Version 1)
Quarter: 2017Q3

REPORT INFORMATION
  Report Type: Spontaneous
  Country: US (occurrence: US)
  Receive Date: 20170719
  Receipt Date: 20170719
  Transmission Date: 20171127
  Serious: Yes (Death)
  Sender: FDA-Public Use
  Company Number: US-TEVA-727929ACC

PATIENT
  Age: 87 Year
  Sex: Female
  Weight: 59.02 kg

DRUGS (1)
  1. FENTANYL TRANSDERMAL SYSTEM [Suspect]
     Active Substance: FENTANYL
     Indication: PAIN
     Dosage: 50 MCG 5

REACTIONS (5)
  - Drug ineffective [Unknown]
  - Tremor [Unknown]
  - Withdrawal syndrome [Unknown]
  - Product adhesion issue [Unknown]
  - Death [Fatal]

NARRATIVE: CASE EVENT DATE: 20170529
